FAERS Safety Report 13628528 (Version 1)
Quarter: 2017Q2

REPORT INFORMATION
  Report Type: Spontaneous
  Country: US (occurrence: US)
  Receive Date: 20170608
  Receipt Date: 20170608
  Transmission Date: 20170830
  Serious: No
  Sender: FDA-Public Use
  Company Number: US-MISSION PHARMACAL COMPANY-2021682

PATIENT
  Age: 62 Year
  Sex: Female

DRUGS (5)
  1. LOSARTAN. [Concomitant]
     Active Substance: LOSARTAN
  2. UROCIT-K [Suspect]
     Active Substance: POTASSIUM CITRATE
     Indication: NEPHROLITHIASIS
     Route: 065
  3. SIMVASTATIN. [Concomitant]
     Active Substance: SIMVASTATIN
  4. CALCIUM SUPPLEMENT [Concomitant]
     Active Substance: CALCIUM
  5. VITAMIN D [Suspect]
     Active Substance: CHOLECALCIFEROL

REACTIONS (2)
  - Osteoporosis [Unknown]
  - Urine calcium decreased [Unknown]
